FAERS Safety Report 22163610 (Version 1)
Quarter: 2023Q2

REPORT INFORMATION
  Report Type: Spontaneous
  Country: US (occurrence: US)
  Receive Date: 20230401
  Receipt Date: 20230401
  Transmission Date: 20230721
  Serious: Yes (Other)
  Sender: FDA-Public Use
  Company Number: US-TEVA-2023-US-2872190

PATIENT

DRUGS (1)
  1. GLYBURIDE [Suspect]
     Active Substance: GLYBURIDE
     Indication: Product used for unknown indication
     Dosage: 1.25 MG

REACTIONS (7)
  - Lip swelling [Unknown]
  - Throat tightness [Unknown]
  - Swelling face [Unknown]
  - Rash macular [Unknown]
  - Chills [Unknown]
  - Peripheral swelling [Unknown]
  - Paraesthesia [Unknown]
